FAERS Safety Report 4711955-X (Version None)
Quarter: 2005Q2

REPORT INFORMATION
  Report Type: 
  Country: None (occurrence: None)
  Receive Date: 20050629
  Receipt Date: 20050421
  Transmission Date: 20051028
  Serious: No
  Sender: FDA-Public Use
  Company Number: 05P-163-0298184-00

PATIENT
  Age: 67 Year
  Sex: Male
  Weight: 95.2554 kg

DRUGS (4)
  1. HUMIRA [Suspect]
     Indication: RHEUMATOID ARTHRITIS
     Dosage: 40 MG, 1 IN 2 WK, SUBCUTANEOUS
     Route: 058
     Dates: start: 20050201
  2. LIPROSOL [Concomitant]
  3. METFORMIN [Concomitant]
  4. VITAMINS [Concomitant]

REACTIONS (1)
  - RASH PRURITIC [None]
